FAERS Safety Report 6657470-8 (Version None)
Quarter: 2010Q1

REPORT INFORMATION
  Report Type: 
  Country: None (occurrence: None)
  Receive Date: 20100330
  Receipt Date: 20100319
  Transmission Date: 20100710
  Serious: Yes (Hospitalization, Other)
  Sender: FDA-Public Use
  Company Number: PHHY2010NZ02240

PATIENT
  Sex: Male

DRUGS (1)
  1. CLOZARIL [Suspect]
     Indication: SCHIZOPHRENIA
     Dosage: 125 MG, UNK
     Route: 048
     Dates: start: 20030502, end: 20100114

REACTIONS (3)
  - INFLAMMATORY BOWEL DISEASE [None]
  - INTESTINAL RESECTION [None]
  - MESENTERIC VASCULAR INSUFFICIENCY [None]
